FAERS Safety Report 25958194 (Version 1)
Quarter: 2025Q4

REPORT INFORMATION
  Report Type: Spontaneous
  Country: AU (occurrence: AU)
  Receive Date: 20251024
  Receipt Date: 20251024
  Transmission Date: 20260117
  Serious: Yes (Hospitalization, Other)
  Sender: TAKEDA
  Company Number: AU-TAKEDA-2025TUS090708

PATIENT
  Age: 35 Year
  Sex: Female

DRUGS (1)
  1. VYVANSE [Suspect]
     Active Substance: LISDEXAMFETAMINE DIMESYLATE
     Indication: Attention deficit hyperactivity disorder
     Dosage: 20 MILLIGRAM

REACTIONS (4)
  - Arrhythmia [Recovering/Resolving]
  - Chest discomfort [Unknown]
  - Heart rate irregular [Unknown]
  - Palpitations [Unknown]

NARRATIVE: CASE EVENT DATE: 20250917
